FAERS Safety Report 5757155-6 (Version None)
Quarter: 2008Q2

REPORT INFORMATION
  Report Type: 
  Country: None (occurrence: None)
  Receive Date: 20080603
  Receipt Date: 20080523
  Transmission Date: 20081010
  Serious: Yes (Life-Threatening, Hospitalization)
  Sender: FDA-Public Use
  Company Number: US-JNJFOC-20080505231

PATIENT
  Age: 41 Year
  Sex: Female
  Weight: 98 kg

DRUGS (2)
  1. ACETAMINOPHEN [Suspect]
  2. ACETAMINOPHEN [Suspect]
     Indication: MIGRAINE

REACTIONS (2)
  - ACUTE FATTY LIVER OF PREGNANCY [None]
  - DRUG EXPOSURE DURING PREGNANCY [None]
